FAERS Safety Report 14495285 (Version 1)
Quarter: 2018Q1

REPORT INFORMATION
  Report Type: Spontaneous
  Country: US (occurrence: US)
  Receive Date: 20180206
  Receipt Date: 20180206
  Transmission Date: 20180509
  Serious: No
  Sender: FDA-Public Use
  Company Number: US-SMITH AND NEPHEW, INC-2016SMT01142

PATIENT
  Age: 62 Year
  Sex: Male
  Weight: 106.58 kg

DRUGS (4)
  1. VICTOZA [Concomitant]
     Active Substance: LIRAGLUTIDE
  2. INVOKANA [Concomitant]
     Active Substance: CANAGLIFLOZIN
  3. TRESIBA [Concomitant]
     Active Substance: INSULIN DEGLUDEC
  4. REGRANEX [Suspect]
     Active Substance: BECAPLERMIN
     Indication: DIABETIC ULCER
     Dosage: UNK, 1X/DAY
     Route: 061
     Dates: start: 201612, end: 201612

REACTIONS (2)
  - Laboratory test abnormal [Recovering/Resolving]
  - Wound infection [Recovering/Resolving]

NARRATIVE: CASE EVENT DATE: 201612
